FAERS Safety Report 18065527 (Version 2)
Quarter: 2020Q3

REPORT INFORMATION
  Report Type: Spontaneous
  Country: RO (occurrence: RO)
  Receive Date: 20200724
  Receipt Date: 20200919
  Transmission Date: 20201103
  Serious: Yes (Death, Other)
  Sender: FDA-Public Use
  Company Number: RO-ROCHE-2647177

PATIENT
  Age: 30 Year
  Sex: Male

DRUGS (1)
  1. ALECENSA [Suspect]
     Active Substance: ALECTINIB HYDROCHLORIDE
     Indication: LUNG ADENOCARCINOMA
     Dosage: 2X 600 MG/ZI
     Route: 065
     Dates: start: 20200301

REACTIONS (4)
  - Cardiac tamponade [Unknown]
  - Deep vein thrombosis [Unknown]
  - Death [Fatal]
  - Pleurisy [Unknown]

NARRATIVE: CASE EVENT DATE: 20200627
